FAERS Safety Report 4831069-8 (Version None)
Quarter: 2005Q4

REPORT INFORMATION
  Report Type: 
  Country: None (occurrence: None)
  Receive Date: 20051114
  Receipt Date: 20051103
  Transmission Date: 20060501
  Serious: Yes (Hospitalization)
  Sender: FDA-Public Use
  Company Number: 2005151141

PATIENT
  Age: 77 Year
  Sex: Female

DRUGS (2)
  1. PREDNISONE [Suspect]
     Indication: POLYMYALGIA RHEUMATICA
     Dosage: ORAL
     Route: 048
  2. ARTROX (GLUCOSAMINE) [Suspect]
     Indication: POLYMYALGIA RHEUMATICA
     Dosage: ( ORAL25 MG), ORAL
     Route: 048

REACTIONS (4)
  - ANAEMIA [None]
  - CARDIAC MURMUR [None]
  - DUODENAL ULCER [None]
  - MELAENA [None]
